FAERS Safety Report 9200616 (Version 2)
Quarter: 2013Q2

REPORT INFORMATION
  Report Type: Spontaneous
  Country: US (occurrence: US)
  Receive Date: 20130329
  Receipt Date: 20130502
  Transmission Date: 20140414
  Serious: Yes (Other)
  Sender: FDA-Public Use
  Company Number: US-BAYER-2013-040006

PATIENT
  Age: 81 Year
  Sex: Female
  Weight: 84.82 kg

DRUGS (8)
  1. XARELTO [Suspect]
     Indication: CEREBROVASCULAR ACCIDENT PROPHYLAXIS
     Dosage: 20 MG, QD
     Route: 048
     Dates: start: 20130305
  2. XARELTO [Interacting]
     Indication: ATRIAL FIBRILLATION
  3. ACETYLSALICYLIC ACID({=100 MG) [Interacting]
     Indication: ANTICOAGULANT THERAPY
     Dosage: 81 MG, QD
     Route: 048
  4. THYROID [Concomitant]
     Indication: HYPOTHYROIDISM
     Dosage: 120 MG, QD
     Route: 048
  5. BIOTIN [Concomitant]
     Indication: ONYCHOCLASIS
     Dosage: 5000 MG, QD
     Route: 048
     Dates: start: 2010
  6. SOTALOL [Concomitant]
     Indication: ATRIAL FIBRILLATION
     Dosage: 80 MG, BID
     Route: 048
     Dates: start: 2009
  7. DIGOXIN [Concomitant]
     Indication: ATRIAL FIBRILLATION
     Dosage: 125 MG, QD
     Route: 048
     Dates: start: 20130308
  8. AMOXICILLIN [Concomitant]
     Indication: FUNGAL INFECTION
     Route: 048
     Dates: start: 201210, end: 201210

REACTIONS (1)
  - Blood urine present [Recovered/Resolved]
